FAERS Safety Report 18364735 (Version 2)
Quarter: 2021Q1

REPORT INFORMATION
  Report Type: Spontaneous
  Country: JP (occurrence: JP)
  Receive Date: 20201009
  Receipt Date: 20210108
  Transmission Date: 20210419
  Serious: Yes (Life-Threatening, Hospitalization, Other)
  Sender: FDA-Public Use
  Company Number: JP-BRISTOL-MYERS SQUIBB COMPANY-BMS-2020-082711

PATIENT
  Age: 60 Year
  Sex: Female
  Weight: 45.8 kg

DRUGS (1)
  1. OPDIVO [Suspect]
     Active Substance: NIVOLUMAB
     Indication: GASTRIC CANCER
     Dosage: 240 MILLIGRAM/ BODY
     Route: 041
     Dates: start: 20200804, end: 20200917

REACTIONS (5)
  - Large intestine perforation [Not Recovered/Not Resolved]
  - Malignant neoplasm progression [Unknown]
  - Disseminated intravascular coagulation [Not Recovered/Not Resolved]
  - Sepsis [Not Recovered/Not Resolved]
  - Infection [Unknown]

NARRATIVE: CASE EVENT DATE: 20200929
